FAERS Safety Report 6558472-2 (Version None)
Quarter: 2010Q1

REPORT INFORMATION
  Report Type: 
  Country: None (occurrence: None)
  Receive Date: 20100126
  Receipt Date: 20100113
  Transmission Date: 20100710
  Serious: Yes (Hospitalization)
  Sender: FDA-Public Use
  Company Number: 234770K09USA

PATIENT
  Age: 47 Year
  Sex: Female
  Weight: 61 kg

DRUGS (5)
  1. REBIF [Suspect]
     Indication: MULTIPLE SCLEROSIS
     Dosage: 44 MCG, 3 IN 1 WEEKS, SUBCUTANEOUS
     Route: 058
     Dates: start: 20061201, end: 20090320
  2. REBIF [Suspect]
     Indication: MULTIPLE SCLEROSIS
     Dosage: 44 MCG, 3 IN 1 WEEKS, SUBCUTANEOUS
     Route: 058
     Dates: start: 20090330
  3. PROZAC [Concomitant]
  4. ESTRADIOL (ESTRADIOL /00045401/) [Concomitant]
  5. TEGRETOL [Concomitant]

REACTIONS (3)
  - CHOLELITHIASIS [None]
  - JAUNDICE CHOLESTATIC [None]
  - PANCREATITIS [None]
